FAERS Safety Report 7524740-0 (Version None)
Quarter: 2011Q2

REPORT INFORMATION
  Report Type: 
  Country: None (occurrence: None)
  Receive Date: 20110606
  Receipt Date: 20101220
  Transmission Date: 20111010
  Serious: Yes (Hospitalization, Other)
  Sender: FDA-Public Use
  Company Number: US-BAYER-US-2007-028571

PATIENT
  Age: 19 Year
  Sex: Female
  Weight: 55.3 kg

DRUGS (7)
  1. FLEXERIL [Concomitant]
     Indication: BACK PAIN
     Dosage: ^10^/THREE TIMES PER DAY AS NEEDED
     Dates: start: 20070727
  2. KEFLEX [Concomitant]
  3. RED BLOOD CELLS [Concomitant]
  4. ANCEF [Concomitant]
     Indication: PUERPERAL PYREXIA
  5. EFFEXOR XR [Concomitant]
     Indication: POSTPARTUM DEPRESSION
     Dosage: DAILY DOSE 75 MG
     Dates: start: 20070531
  6. YASMIN [Suspect]
     Indication: CONTRACEPTION
     Dosage: 1 TAB(S), 1X/DAY [DAILY DOSE: 1 TAB(S)] [TOTAL DOSE: 1 TAB(S)]
     Route: 048
     Dates: start: 20070524, end: 20070730
  7. VENLAFAXINE HCL [Concomitant]
     Dosage: UNK, UNK
     Dates: start: 20070727

REACTIONS (12)
  - SINUS TACHYCARDIA [None]
  - RHINITIS ALLERGIC [None]
  - PULMONARY EMBOLISM [None]
  - VAGINAL DISORDER [None]
  - HAEMORRHAGIC ANAEMIA [None]
  - PNEUMONIA [None]
  - DEPRESSION [None]
  - DYSPNOEA [None]
  - BACK PAIN [None]
  - MENTAL DISORDER [None]
  - HYPOTENSION [None]
  - PULMONARY FIBROSIS [None]
